FAERS Safety Report 11928002 (Version 2)
Quarter: 2016Q1

REPORT INFORMATION
  Report Type: Spontaneous
  Country: US (occurrence: US)
  Receive Date: 20160119
  Receipt Date: 20160222
  Transmission Date: 20160526
  Serious: Yes (Hospitalization)
  Sender: FDA-Public Use
  Company Number: US-TEVA-626957USA

PATIENT
  Age: 62 Year
  Sex: Female

DRUGS (4)
  1. DOXORUBICIN [Suspect]
     Active Substance: DOXORUBICIN
     Dosage: 10 MG/M2/DAY
     Route: 041
  2. DOXORUBICIN [Suspect]
     Active Substance: DOXORUBICIN
     Dosage: 5 MG/M2/DAY
  3. DOXORUBICIN [Suspect]
     Active Substance: DOXORUBICIN
     Dosage: 20 MG/M2/DAY
  4. DOXORUBICIN [Suspect]
     Active Substance: DOXORUBICIN
     Dosage: 20 MG/M2/DAY
     Route: 041

REACTIONS (1)
  - Febrile neutropenia [Recovering/Resolving]
